FAERS Safety Report 4856647-1 (Version None)
Quarter: 2005Q4

REPORT INFORMATION
  Report Type: 
  Country: None (occurrence: None)
  Receive Date: 20051219
  Receipt Date: 20050111
  Transmission Date: 20060501
  Serious: No
  Sender: FDA-Public Use
  Company Number: US-GLAXOSMITHKLINE-A0540202A

PATIENT
  Age: 50 Year
  Sex: Male

DRUGS (2)
  1. NICODERM CQ [Suspect]
     Dates: start: 20041231, end: 20050105
  2. NICODERM CQ [Suspect]
     Dates: start: 20050105

REACTIONS (7)
  - ABNORMAL DREAMS [None]
  - APPLICATION SITE PRURITUS [None]
  - DIZZINESS [None]
  - NAUSEA [None]
  - NICOTINE DEPENDENCE [None]
  - PAIN IN EXTREMITY [None]
  - VOMITING [None]
